FAERS Safety Report 5476976-0 (Version None)
Quarter: 2007Q4

REPORT INFORMATION
  Report Type: 
  Country: None (occurrence: None)
  Receive Date: 20071003
  Receipt Date: 20071003
  Transmission Date: 20080405
  Serious: Yes (Hospitalization)
  Sender: FDA-Public Use
  Company Number: None

PATIENT
  Sex: Female
  Weight: 45 kg

DRUGS (2)
  1. TAXOL [Suspect]
     Dosage: 245.5 MG
  2. CARBOPLATIN [Suspect]
     Dosage: 650.4 MG

REACTIONS (1)
  - NEUTROPENIA [None]
